FAERS Safety Report 16775785 (Version 3)
Quarter: 2020Q1

REPORT INFORMATION
  Report Type: Spontaneous
  Country: GB (occurrence: GB)
  Receive Date: 20190905
  Receipt Date: 20200207
  Transmission Date: 20200409
  Serious: Yes (Other)
  Sender: FDA-Public Use
  Company Number: GB-PFIZER INC-2019376736

PATIENT
  Age: 80 Year
  Sex: Male
  Weight: 84 kg

DRUGS (11)
  1. LACTULOSE. [Concomitant]
     Active Substance: LACTULOSE
     Dosage: 30 ML, DAILY
     Dates: start: 20181017, end: 20190807
  2. DIFFERIN [Concomitant]
     Active Substance: ADAPALENE
     Dosage: 1 DF, DAILY (APPLIED )
     Dates: start: 20181017
  3. APIXABAN [Concomitant]
     Active Substance: APIXABAN
     Dosage: 2 DF, DAILY
     Dates: start: 20190304
  4. ATORVASTATIN [Concomitant]
     Active Substance: ATORVASTATIN
     Dosage: 1 DF, DAILY (AT NIGHT)
     Dates: start: 20181017
  5. SPIRONOLACTONE. [Suspect]
     Active Substance: SPIRONOLACTONE
     Dosage: 25 MG, DAILY
     Dates: start: 20190304, end: 20190807
  6. CHLORAMPHENICOL [Concomitant]
     Active Substance: CHLORAMPHENICOL
     Dosage: 4 DF, DAILY (APPLY)
     Dates: start: 20190606, end: 20190611
  7. SYSTANE (POLYETHYLENE GLYCOL 400\PROPYLENE GLYCOL) [Concomitant]
     Active Substance: POLYETHYLENE GLYCOL 400\PROPYLENE GLYCOL
     Dosage: UNK, AS NEEDED (ONE TO TWO DROPS TO RIGHT EYE)
     Route: 050
     Dates: start: 20190619, end: 20190717
  8. RAMIPRIL. [Concomitant]
     Active Substance: RAMIPRIL
     Dosage: 1 DF, DAILY
     Dates: start: 20181017
  9. BISOPROLOL [Concomitant]
     Active Substance: BISOPROLOL
     Dosage: 5 MG, 2X/DAY (TAKE ONE DAILY IN ADDITION TO USUAL 5MG TABLET; TOTAL DAILY DOSE 10MG)
     Dates: start: 20190122
  10. FUROSEMIDE. [Concomitant]
     Active Substance: FUROSEMIDE
     Dosage: 2 DF, DAILY (IN THE MORNING)
     Dates: start: 20190807
  11. GLYCERYL TRINITRATE [Concomitant]
     Active Substance: NITROGLYCERIN
     Dosage: UNK, AS NEEDED (USE 1-2 SPRAYS UNDER THE TONGUE)
     Route: 060
     Dates: start: 20181017

REACTIONS (2)
  - Malaise [Unknown]
  - Joint swelling [Recovered/Resolved]
